FAERS Safety Report 5047789-9 (Version None)
Quarter: 2006Q3

REPORT INFORMATION
  Report Type: 
  Country: None (occurrence: None)
  Receive Date: 20060705
  Receipt Date: 20060626
  Transmission Date: 20061208
  Serious: Yes (Other)
  Sender: FDA-Public Use
  Company Number: 2006-06-2089

PATIENT
  Sex: Male

DRUGS (1)
  1. ISOSORBIDE MONONITRATE [Suspect]
     Dosage: ORAL
     Route: 048

REACTIONS (5)
  - MEDICATION RESIDUE [None]
  - OBSTRUCTION [None]
  - PAIN [None]
  - SCAR [None]
  - STENT PLACEMENT [None]
